FAERS Safety Report 7249466-2 (Version None)
Quarter: 2011Q1

REPORT INFORMATION
  Report Type: 
  Country: None (occurrence: None)
  Receive Date: 20110128
  Receipt Date: 20101207
  Transmission Date: 20110831
  Serious: Yes (Hospitalization, Other)
  Sender: FDA-Public Use
  Company Number: US-BAYER-201033403NA

PATIENT
  Sex: Female
  Weight: 66 kg

DRUGS (6)
  1. OVCON-35 [Concomitant]
     Indication: CONTRACEPTION
     Dosage: UNK
     Dates: start: 20080701
  2. YAZ [Suspect]
     Indication: ORAL CONTRACEPTION
     Dosage: UNK UNK, UNK
     Route: 048
     Dates: start: 20061101, end: 20071101
  3. PERCOCET [Concomitant]
  4. SINGULAIR [Concomitant]
  5. PHENERGAN [Concomitant]
  6. ZYRTEC [Concomitant]
     Indication: HYPERSENSITIVITY

REACTIONS (9)
  - CHOLECYSTITIS [None]
  - INITIAL INSOMNIA [None]
  - GASTROINTESTINAL DISORDER [None]
  - CHOLELITHIASIS [None]
  - NAUSEA [None]
  - ABDOMINAL PAIN [None]
  - EMOTIONAL DISTRESS [None]
  - GASTROINTESTINAL DISORDER POSTOPERATIVE [None]
  - BACK PAIN [None]
